FAERS Safety Report 13295703 (Version 1)
Quarter: 2017Q1

REPORT INFORMATION
  Report Type: Spontaneous
  Country: US (occurrence: US)
  Receive Date: 20170303
  Receipt Date: 20170303
  Transmission Date: 20170428
  Serious: Yes (Death, Hospitalization, Other)
  Sender: FDA-Public Use
  Company Number: US-TEVA-745349USA

PATIENT
  Age: 13 Year
  Sex: Female

DRUGS (1)
  1. BUPROPION EXTENDED RELEASE [Suspect]
     Active Substance: BUPROPION
     Indication: COMPLETED SUICIDE
     Dosage: 21000 MG
     Route: 048

REACTIONS (14)
  - Apnoea [Unknown]
  - Cardiac arrest [Unknown]
  - Ventricular fibrillation [Unknown]
  - Ventricular tachycardia [Unknown]
  - Electrocardiogram QT prolonged [Not Recovered/Not Resolved]
  - Brain oedema [Unknown]
  - Coma [Unknown]
  - Brain stem syndrome [Unknown]
  - Completed suicide [Fatal]
  - Areflexia [Unknown]
  - Papilloedema [Unknown]
  - Intentional overdose [Fatal]
  - Seizure [Unknown]
  - Electroencephalogram abnormal [Unknown]
